FAERS Safety Report 5534044-3 (Version None)
Quarter: 2007Q4

REPORT INFORMATION
  Report Type: 
  Country: None (occurrence: None)
  Receive Date: 20071129
  Receipt Date: 20071129
  Transmission Date: 20080405
  Serious: Yes (Hospitalization)
  Sender: FDA-Public Use
  Company Number: None

PATIENT
  Age: 81 Year
  Sex: Female
  Weight: 65.7716 kg

DRUGS (1)
  1. TRILEPTAL [Suspect]
     Indication: NEURALGIA
     Dates: start: 20070504, end: 20070721

REACTIONS (1)
  - HYPONATRAEMIA [None]
